FAERS Safety Report 7316767-9 (Version None)
Quarter: 2011Q1

REPORT INFORMATION
  Report Type: 
  Country: None (occurrence: None)
  Receive Date: 20110226
  Receipt Date: 20100812
  Transmission Date: 20110831
  Serious: No
  Sender: FDA-Public Use
  Company Number: US-ALLERGAN-1010493US

PATIENT
  Age: 79 Year
  Sex: Female
  Weight: 70.295 kg

DRUGS (10)
  1. PLAVIX [Concomitant]
  2. SERTRALINE [Concomitant]
  3. LISINOPRIL [Concomitant]
  4. TIZANIDINE [Concomitant]
  5. PRAVASTATIN [Concomitant]
  6. METOPROLOL SUCCINATE [Concomitant]
  7. HYDROCODONE BITARTRATE [Concomitant]
  8. NEXIUM [Concomitant]
  9. BOTOXA? [Suspect]
     Indication: MUSCLE SPASTICITY
     Dosage: UNK
     Route: 030
  10. AMLODIPINE [Concomitant]

REACTIONS (5)
  - RENAL IMPAIRMENT [None]
  - ARTHRITIS [None]
  - BODY HEIGHT DECREASED [None]
  - OSTEOPOROSIS [None]
  - MUSCULAR WEAKNESS [None]
